FAERS Safety Report 16770657 (Version 2)
Quarter: 2019Q3

REPORT INFORMATION
  Report Type: Spontaneous
  Country: GB (occurrence: GB)
  Receive Date: 20190904
  Receipt Date: 20190927
  Transmission Date: 20191005
  Serious: Yes (Other)
  Sender: FDA-Public Use
  Company Number: PHHY2019GB203115

PATIENT

DRUGS (1)
  1. SIMBRINZA [Suspect]
     Active Substance: BRIMONIDINE TARTRATE\BRINZOLAMIDE
     Indication: OCULAR HYPERTENSION
     Route: 065

REACTIONS (5)
  - Arthritis [Recovering/Resolving]
  - Hypersensitivity [Unknown]
  - Depression [Recovering/Resolving]
  - Visual impairment [Recovering/Resolving]
  - Seizure [Recovering/Resolving]
